FAERS Safety Report 13416232 (Version 4)
Quarter: 2017Q2

REPORT INFORMATION
  Report Type: Spontaneous
  Country: GB (occurrence: GB)
  Receive Date: 20170406
  Receipt Date: 20170505
  Transmission Date: 20170830
  Serious: Yes (Hospitalization)
  Sender: FDA-Public Use
  Company Number: GB-SA-2017SA057409

PATIENT
  Sex: Female

DRUGS (4)
  1. FABRAZYME [Suspect]
     Active Substance: AGALSIDASE BETA
     Route: 041
     Dates: end: 20170316
  2. PERINDOPRIL [Concomitant]
     Active Substance: PERINDOPRIL
  3. PERINDOPRIL [Concomitant]
     Active Substance: PERINDOPRIL
  4. FABRAZYME [Suspect]
     Active Substance: AGALSIDASE BETA
     Route: 041
     Dates: start: 20170413

REACTIONS (5)
  - Arrhythmia [Unknown]
  - Chest pain [Recovered/Resolved]
  - Circulatory collapse [Unknown]
  - Fatigue [Unknown]
  - Cardiomyopathy [Unknown]

NARRATIVE: CASE EVENT DATE: 20170413
